FAERS Safety Report 6931548-3 (Version None)
Quarter: 2010Q3

REPORT INFORMATION
  Report Type: 
  Country: None (occurrence: None)
  Receive Date: 20100813
  Receipt Date: 20100415
  Transmission Date: 20110219
  Serious: No
  Sender: FDA-Public Use
  Company Number: 1000013215

PATIENT
  Age: 44 Year
  Sex: Male

DRUGS (10)
  1. SAVELLA [Suspect]
     Indication: NEUROPATHY PERIPHERAL
     Dosage: 12.5 MG (12.5 MG, 1 IN 1 D), ORAL
     Route: 048
     Dates: start: 20100414, end: 20100414
  2. GABAPENTIN [Concomitant]
  3. CARDIZEM LA [Concomitant]
  4. HYDROCODONE [Concomitant]
  5. HYDROCHLOROTHIAZIDE [Concomitant]
  6. TRAZODONE HCL [Concomitant]
  7. ATENOLOL [Concomitant]
  8. EFFEXOR [Concomitant]
  9. ALPRAZOLAM [Concomitant]
  10. CITALOPRAM HYDROBROMIDE [Concomitant]

REACTIONS (4)
  - ARTHRALGIA [None]
  - GAIT DISTURBANCE [None]
  - MUSCULAR WEAKNESS [None]
  - PAIN IN EXTREMITY [None]
